FAERS Safety Report 7629148-5 (Version None)
Quarter: 2011Q3

REPORT INFORMATION
  Report Type: 
  Country: None (occurrence: None)
  Receive Date: 20110715
  Receipt Date: 20110706
  Transmission Date: 20111222
  Serious: Yes (Hospitalization, Other)
  Sender: FDA-Public Use
  Company Number: US-2011-10461

PATIENT
  Age: 54 Year
  Sex: Male

DRUGS (2)
  1. BUSULFAN [Suspect]
     Indication: STEM CELL TRANSPLANT
  2. CYCLOPHOSPHAMIDE [Suspect]
     Indication: STEM CELL TRANSPLANT

REACTIONS (8)
  - CEREBRAL HAEMATOMA [None]
  - MYELOMA RECURRENCE [None]
  - SOMNOLENCE [None]
  - CONFUSIONAL STATE [None]
  - HEMIPARESIS [None]
  - PLASMACYTOMA [None]
  - APHASIA [None]
  - CEREBRAL HAEMORRHAGE [None]
